FAERS Safety Report 10179173 (Version 3)
Quarter: 2014Q4

REPORT INFORMATION
  Report Type: Report from Study
  Country: US (occurrence: US)
  Receive Date: 20140519
  Receipt Date: 20141119
  Transmission Date: 20150528
  Serious: No
  Sender: FDA-Public Use
  Company Number: US-VERTEX PHARMACEUTICALS INC-2014-002322

PATIENT
  Sex: Male

DRUGS (1)
  1. IVACAFTOR [Suspect]
     Active Substance: IVACAFTOR
     Indication: CYSTIC FIBROSIS
     Dosage: UNK
     Route: 048
     Dates: start: 20120214

REACTIONS (4)
  - Malaise [Recovered/Resolved]
  - Bronchitis viral [Unknown]
  - Infectious mononucleosis [Unknown]
  - Mycobacterium test positive [Unknown]

NARRATIVE: CASE EVENT DATE: 2014
